FAERS Safety Report 11700560 (Version 1)
Quarter: 2015Q4

REPORT INFORMATION
  Report Type: Report from Study
  Country: US (occurrence: US)
  Receive Date: 20151105
  Receipt Date: 20151105
  Transmission Date: 20160304
  Serious: Yes (Other)
  Sender: FDA-Public Use
  Company Number: US-ROCHE-1265372

PATIENT
  Sex: Male

DRUGS (15)
  1. LISINOPRIL. [Concomitant]
     Active Substance: LISINOPRIL
     Route: 065
  2. SITAGLIPTIN PHOSPHATE [Concomitant]
     Active Substance: SITAGLIPTIN PHOSPHATE
     Dosage: 1APPLICATOR BY MOUTH ONCE DAILY
     Route: 048
  3. JANUVIA [Concomitant]
     Active Substance: SITAGLIPTIN PHOSPHATE
  4. OXYCODONE [Concomitant]
     Active Substance: OXYCODONE
     Route: 048
  5. LUCENTIS [Suspect]
     Active Substance: RANIBIZUMAB
     Indication: DIABETIC RETINAL OEDEMA
     Route: 050
  6. LUCENTIS [Suspect]
     Active Substance: RANIBIZUMAB
     Indication: DIABETIC RETINOPATHY
     Route: 050
  7. BRIMONIDINE [Concomitant]
     Active Substance: BRIMONIDINE TARTRATE
     Route: 065
  8. TIMOLOL. [Concomitant]
     Active Substance: TIMOLOL
  9. LIDOCAINE. [Concomitant]
     Active Substance: LIDOCAINE
     Route: 065
  10. METFORMIN HYDROCHLORIDE. [Concomitant]
     Active Substance: METFORMIN HYDROCHLORIDE
     Route: 048
  11. ATROPINE. [Concomitant]
     Active Substance: ATROPINE
  12. MYDRIACYL [Concomitant]
     Active Substance: TROPICAMIDE
     Route: 065
  13. AVASTIN [Suspect]
     Active Substance: BEVACIZUMAB
     Indication: DIABETIC RETINAL OEDEMA
     Route: 065
  14. AVASTIN [Suspect]
     Active Substance: BEVACIZUMAB
     Indication: DIABETIC RETINOPATHY
  15. PHENYLEPHRINE [Concomitant]
     Active Substance: PHENYLEPHRINE\PHENYLEPHRINE HYDROCHLORIDE
     Route: 065

REACTIONS (7)
  - Blood glucose abnormal [Unknown]
  - Weight increased [Unknown]
  - Glycosylated haemoglobin increased [Unknown]
  - Hypertension [Unknown]
  - Eye haemorrhage [Unknown]
  - Visual acuity reduced [Unknown]
  - Erythema [Unknown]
